FAERS Safety Report 4390509-1 (Version None)
Quarter: 2004Q2

REPORT INFORMATION
  Report Type: 
  Country: None (occurrence: None)
  Receive Date: 20040630
  Receipt Date: 20040630
  Transmission Date: 20050107
  Serious: Yes (Hospitalization, Other)
  Sender: FDA-Public Use
  Company Number: None

PATIENT
  Age: 5 Week
  Sex: Male
  Weight: 4.0824 kg

DRUGS (1)
  1. ERYTHROMYCIN [Suspect]
     Indication: PERTUSSIS
     Dosage: ORAL QID
     Route: 048
     Dates: start: 20040602, end: 20040616

REACTIONS (1)
  - ACQUIRED PYLORIC STENOSIS [None]
